FAERS Safety Report 25423912 (Version 1)
Quarter: 2025Q2

REPORT INFORMATION
  Report Type: Spontaneous
  Country: US (occurrence: None)
  Receive Date: 20250610
  Receipt Date: 20250610
  Transmission Date: 20250717
  Serious: Yes (Life-Threatening, Hospitalization, Other)
  Sender: FDA-CTU
  Company Number: None

PATIENT

DRUGS (2)
  1. SERTRALINE [Suspect]
     Active Substance: SERTRALINE HYDROCHLORIDE
  2. FLUOXETINE [Suspect]
     Active Substance: FLUOXETINE HYDROCHLORIDE

REACTIONS (28)
  - Drug monitoring procedure not performed [None]
  - Withdrawal syndrome [None]
  - Dizziness [None]
  - Palpitations [None]
  - Postural orthostatic tachycardia syndrome [None]
  - Tinnitus [None]
  - Headache [None]
  - Neck pain [None]
  - Back pain [None]
  - Fatigue [None]
  - Sleep disorder [None]
  - Herpes zoster [None]
  - Insomnia [None]
  - Muscle contractions involuntary [None]
  - Affect lability [None]
  - Paraesthesia [None]
  - Paraesthesia [None]
  - Paraesthesia [None]
  - Migraine [None]
  - Gastrointestinal disorder [None]
  - Violence-related symptom [None]
  - Tremor [None]
  - Cognitive disorder [None]
  - Weight decreased [None]
  - Restlessness [None]
  - Therapy cessation [None]
  - Economic problem [None]
  - Family stress [None]

NARRATIVE: CASE EVENT DATE: 20220502
